APPROVED DRUG PRODUCT: BUTORPHANOL TARTRATE PRESERVATIVE FREE
Active Ingredient: BUTORPHANOL TARTRATE
Strength: 1MG/ML
Dosage Form/Route: INJECTABLE;INJECTION
Application: A075045 | Product #001 | TE Code: AP
Applicant: HIKMA PHARMACEUTICALS USA INC
Approved: Aug 12, 1998 | RLD: No | RS: No | Type: RX